FAERS Safety Report 5369451-5 (Version None)
Quarter: 2007Q2

REPORT INFORMATION
  Report Type: 
  Country: None (occurrence: None)
  Receive Date: 20070625
  Receipt Date: 20070613
  Transmission Date: 20071010
  Serious: Yes (Hospitalization)
  Sender: FDA-Public Use
  Company Number: AU-SANOFI-SYNTHELABO-A01200706306

PATIENT
  Age: 26 Year
  Sex: Male

DRUGS (3)
  1. ALCOHOL [Interacting]
     Indication: DRUG USE FOR UNKNOWN INDICATION
     Route: 048
  2. AROPAX [Interacting]
     Indication: DRUG USE FOR UNKNOWN INDICATION
     Dosage: 20 MG
     Route: 065
  3. ZOLPIDEM TARTRATE [Suspect]
     Indication: DRUG USE FOR UNKNOWN INDICATION
     Route: 048
     Dates: start: 20000101, end: 20050101

REACTIONS (6)
  - FACE INJURY [None]
  - FALL [None]
  - HALLUCINATION [None]
  - SLEEP WALKING [None]
  - UPPER LIMB FRACTURE [None]
  - WRIST FRACTURE [None]
